FAERS Safety Report 22634159 (Version 1)
Quarter: 2023Q2

REPORT INFORMATION
  Report Type: Spontaneous
  Country: US (occurrence: US)
  Receive Date: 20230623
  Receipt Date: 20230623
  Transmission Date: 20230722
  Serious: No
  Sender: FDA-Public Use
  Company Number: US-PFIZER INC-202300225257

PATIENT
  Age: 58 Year
  Sex: Female

DRUGS (4)
  1. XELJANZ [Suspect]
     Active Substance: TOFACITINIB CITRATE
     Dosage: 5 MG, 2X/DAY
  2. FISH OIL [Concomitant]
     Active Substance: FISH OIL
  3. IBUPROFEN [Concomitant]
     Active Substance: IBUPROFEN
  4. D3-5 [Concomitant]

REACTIONS (3)
  - Headache [Unknown]
  - Arthralgia [Unknown]
  - Neck pain [Unknown]
